FAERS Safety Report 8882795 (Version 2)
Quarter: 2013Q2

REPORT INFORMATION
  Report Type: Report from Study
  Country: BR (occurrence: BR)
  Receive Date: 20121102
  Receipt Date: 20130429
  Transmission Date: 20140414
  Serious: Yes (Other)
  Sender: FDA-Public Use
  Company Number: PHHY2012BR098768

PATIENT
  Age: 72 Year
  Sex: Female

DRUGS (5)
  1. FORASEQ [Suspect]
     Indication: BRONCHITIS
     Dosage: 1 DF, BID (ONCE  IN THE MORNING AND ONCE AT A NIGHT)
  2. LOSARTAN POTASSICO [Concomitant]
     Indication: HYPERTENSION
     Dosage: 1 DF, QD
     Route: 048
  3. AMLODIPINE BESILATE [Concomitant]
     Indication: HYPERTENSION
     Dosage: 2 DF, QD
     Route: 048
  4. PURAN T4 [Concomitant]
     Indication: HYPOTHYROIDISM
     Dosage: 1 DF, QD
     Route: 048
  5. ROSULIP [Concomitant]
     Indication: BLOOD CHOLESTEROL INCREASED
     Dosage: 1 DF, QD(AT NIGHT)

REACTIONS (14)
  - Cataract [Unknown]
  - Eye haemorrhage [Not Recovered/Not Resolved]
  - Conjunctivitis [Not Recovered/Not Resolved]
  - Vision blurred [Not Recovered/Not Resolved]
  - Hypothyroidism [Recovered/Resolved]
  - Blood pressure increased [Recovered/Resolved]
  - Lacrimation increased [Not Recovered/Not Resolved]
  - Pain in extremity [Not Recovered/Not Resolved]
  - Muscular weakness [Not Recovered/Not Resolved]
  - Asthenia [Recovered/Resolved]
  - Blood cholesterol increased [Recovered/Resolved]
  - Joint injury [Recovered/Resolved]
  - Weight increased [Recovered/Resolved]
  - Back pain [Not Recovered/Not Resolved]
